FAERS Safety Report 5129267-1 (Version None)
Quarter: 2006Q4

REPORT INFORMATION
  Report Type: 
  Country: None (occurrence: None)
  Receive Date: 20061011
  Receipt Date: 20060905
  Transmission Date: 20070319
  Serious: Yes (Hospitalization, Other)
  Sender: FDA-Public Use
  Company Number: 2006104769

PATIENT
  Age: 19 Year
  Sex: Female

DRUGS (1)
  1. PROSTIN E2 [Suspect]
     Indication: LABOUR INDUCTION
     Dosage: 3 MG (2 MG, DAILY), VAGINAL
     Route: 067
     Dates: start: 20060522, end: 20060522

REACTIONS (4)
  - CAESAREAN SECTION [None]
  - DRUG EXPOSURE DURING PREGNANCY [None]
  - DRUG INEFFECTIVE [None]
  - MATERNAL DISTRESS DURING LABOUR [None]
